FAERS Safety Report 5862649-9 (Version None)
Quarter: 2008Q3

REPORT INFORMATION
  Report Type: 
  Country: None (occurrence: None)
  Receive Date: 20080828
  Receipt Date: 20080818
  Transmission Date: 20090109
  Serious: Yes (Hospitalization)
  Sender: FDA-Public Use
  Company Number: DE-AMGEN-UK298610

PATIENT
  Age: 49 Year
  Sex: Male

DRUGS (1)
  1. NEUPOGEN [Suspect]
     Indication: PERIPHERAL BLOOD STEM CELL APHERESIS
     Route: 058

REACTIONS (4)
  - LUNG INFILTRATION [None]
  - PULMONARY HAEMORRHAGE [None]
  - PULMONARY TOXICITY [None]
  - PYREXIA [None]
